FAERS Safety Report 6025360-X (Version None)
Quarter: 2008Q4

REPORT INFORMATION
  Report Type: 
  Country: None (occurrence: None)
  Receive Date: 20081224
  Receipt Date: 20081212
  Transmission Date: 20090506
  Serious: Yes (Other)
  Sender: FDA-Public Use
  Company Number: 2008AP003418

PATIENT
  Age: 45 Year
  Sex: Male

DRUGS (2)
  1. CIMETIDINE [Suspect]
  2. NAPROXEN [Suspect]

REACTIONS (5)
  - LEUKOCYTURIA [None]
  - NAUSEA [None]
  - NEPHRITIS ALLERGIC [None]
  - PYELONEPHRITIS ACUTE [None]
  - TUBULOINTERSTITIAL NEPHRITIS [None]
